FAERS Safety Report 12738302 (Version 1)
Quarter: 2016Q3

REPORT INFORMATION
  Report Type: Spontaneous
  Country: US (occurrence: US)
  Receive Date: 20160912
  Receipt Date: 20160912
  Transmission Date: 20161109
  Serious: Yes (Life-Threatening, Hospitalization)
  Sender: FDA-Public Use
  Company Number: None

PATIENT
  Age: 77 Year
  Sex: Female
  Weight: 71.6 kg

DRUGS (6)
  1. ANCEF AND OPTIRAY [Concomitant]
  2. ROCEPHIN AND OPTIRAY [Concomitant]
  3. MERREM AND OPTIRAY [Concomitant]
  4. OPTIRAY 320 [Suspect]
     Active Substance: IOVERSOL
     Indication: URETHRAL STENT INSERTION
     Dosage: OTHER STRENGTH:;OTHER DOSE:;OTHER FREQUENCY:ONCE;OTHER ROUTE:
     Dates: start: 20151209, end: 20151209
  5. ZOSYN AND OPTIRAY [Concomitant]
  6. OPTIRAY 320 [Suspect]
     Active Substance: IOVERSOL
     Indication: URETHRAL STENT INSERTION
     Dosage: OTHER STRENGTH:;OTHER DOSE:;OTHER FREQUENCY:ONCE;OTHER ROUTE:
     Dates: start: 20160713, end: 20160713

REACTIONS (4)
  - Cardio-respiratory arrest [None]
  - Bronchospasm [None]
  - Hypertension [None]
  - Hypotension [None]

NARRATIVE: CASE EVENT DATE: 20160713
